FAERS Safety Report 10042853 (Version 3)
Quarter: 2014Q2

REPORT INFORMATION
  Report Type: Report from Study
  Country: IE (occurrence: IE)
  Receive Date: 20140327
  Receipt Date: 20140617
  Transmission Date: 20141212
  Serious: Yes (Other)
  Sender: FDA-Public Use
  Company Number: PHHY2014IE017614

PATIENT
  Age: 32 Year
  Sex: Female

DRUGS (2)
  1. GILENYA [Suspect]
     Indication: RELAPSING-REMITTING MULTIPLE SCLEROSIS
     Dosage: 0.5 MG, QD
     Route: 048
     Dates: start: 20140206, end: 20140325
  2. GILENYA [Suspect]
     Dosage: 0.5 MG, QD
     Route: 048

REACTIONS (4)
  - Electrocardiogram QRS complex abnormal [Recovered/Resolved]
  - Electrocardiogram T wave inversion [Recovered/Resolved]
  - Muscle tightness [Recovered/Resolved]
  - Chest discomfort [Recovered/Resolved]
